FAERS Safety Report 7438913-9 (Version None)
Quarter: 2011Q2

REPORT INFORMATION
  Report Type: 
  Country: None (occurrence: None)
  Receive Date: 20110426
  Receipt Date: 20110421
  Transmission Date: 20111010
  Serious: Yes (Other)
  Sender: FDA-Public Use
  Company Number: CA-GILEAD-2011-0038755

PATIENT
  Sex: Male

DRUGS (6)
  1. IMOVANE [Concomitant]
     Dates: start: 20110401
  2. SELENIUM [Concomitant]
  3. MULTI-VITAMIN [Concomitant]
  4. ZANTAC [Concomitant]
     Indication: RASH
  5. BENADRYL [Concomitant]
     Indication: RASH
  6. ATRIPLA [Suspect]
     Indication: HIV INFECTION
     Route: 048
     Dates: start: 20110401, end: 20110412

REACTIONS (1)
  - HYPERSENSITIVITY [None]
